FAERS Safety Report 23291470 (Version 1)
Quarter: 2023Q4

REPORT INFORMATION
  Report Type: Report from Study
  Country: IN (occurrence: None)
  Receive Date: 20231213
  Receipt Date: 20231213
  Transmission Date: 20240110
  Serious: Yes (Death)
  Sender: FDA-Public Use
  Company Number: 2023A280138

PATIENT
  Age: 67 Year
  Sex: Male

DRUGS (1)
  1. TAGRISSO [Suspect]
     Active Substance: OSIMERTINIB
     Indication: Metastatic neoplasm
     Dosage: 80.0MG ONCE/SINGLE ADMINISTRATION
     Route: 048

REACTIONS (3)
  - Pulse absent [Fatal]
  - Hyperhidrosis [Fatal]
  - Feeling abnormal [Fatal]

NARRATIVE: CASE EVENT DATE: 20231029
